FAERS Safety Report 5528547-5 (Version None)
Quarter: 2007Q4

REPORT INFORMATION
  Report Type: 
  Country: None (occurrence: None)
  Receive Date: 20071121
  Receipt Date: 20071105
  Transmission Date: 20080405
  Serious: Yes (Hospitalization)
  Sender: FDA-Public Use
  Company Number: DSA_30864_2007

PATIENT
  Age: 63 Year
  Sex: Male

DRUGS (4)
  1. ENALAPRIL MALEATE [Suspect]
     Indication: ESSENTIAL HYPERTENSION
     Dosage: (20 MG QD ORAL)
     Route: 048
     Dates: end: 20070901
  2. ABSENOR /00228501/ (ABSENOR - VALPROIC ACID) 300 MG [Suspect]
     Indication: EPILEPSY
     Dosage: (300 MG TID ORAL)
     Route: 048
     Dates: start: 20070822, end: 20070901
  3. MINDIAB [Concomitant]
  4. TENORMIN [Concomitant]

REACTIONS (12)
  - ABDOMINAL PAIN [None]
  - BEDRIDDEN [None]
  - CHEST PAIN [None]
  - DEHYDRATION [None]
  - DIALYSIS [None]
  - GASTROINTESTINAL DISORDER [None]
  - GENERAL PHYSICAL HEALTH DETERIORATION [None]
  - HICCUPS [None]
  - NAUSEA [None]
  - ORAL INTAKE REDUCED [None]
  - RENAL FAILURE ACUTE [None]
  - VOMITING [None]
